FAERS Safety Report 15493577 (Version 1)
Quarter: 2018Q4

REPORT INFORMATION
  Report Type: Spontaneous
  Country: US (occurrence: US)
  Receive Date: 20181011
  Receipt Date: 20181011
  Transmission Date: 20190205
  Serious: No
  Sender: FDA-Public Use
  Company Number: None

PATIENT
  Age: 21 Year
  Sex: Female
  Weight: 86.18 kg

DRUGS (3)
  1. FISH OIL [Concomitant]
     Active Substance: FISH OIL
  2. DAILY VITAMIN [Concomitant]
     Active Substance: VITAMINS
  3. MIRENA [Suspect]
     Active Substance: LEVONORGESTREL

REACTIONS (4)
  - Vaginal haemorrhage [None]
  - Abdominal pain [None]
  - Migraine [None]
  - Weight increased [None]

NARRATIVE: CASE EVENT DATE: 20181008
